FAERS Safety Report 8963294 (Version 1)
Quarter: 2012Q4

REPORT INFORMATION
  Report Type: Report from Study
  Country: AT (occurrence: AT)
  Receive Date: 20121214
  Receipt Date: 20121214
  Transmission Date: 20130627
  Serious: Yes (Hospitalization)
  Sender: FDA-Public Use
  Company Number: AT-TEVA-2011003288

PATIENT
  Age: 50 Year
  Sex: Male
  Weight: 76 kg

DRUGS (3)
  1. BENDAMUSTINE HCL [Suspect]
     Indication: NON-HODGKIN^S LYMPHOMA
     Dosage: 178.2 Milligram Daily;
     Route: 042
     Dates: start: 20110225, end: 20110324
  2. BENDAMUSTINE HCL [Suspect]
     Dosage: 178.2 Milligram Daily;
     Route: 042
     Dates: start: 20110423, end: 20110424
  3. RITUXIMAB [Suspect]
     Indication: NON-HODGKIN^S LYMPHOMA
     Dosage: 742.5 Milligram Daily;
     Route: 042
     Dates: start: 20110224, end: 20110323

REACTIONS (2)
  - Endocarditis [Recovered/Resolved]
  - Synovial rupture [Recovered/Resolved]
